FAERS Safety Report 4333569-6 (Version None)
Quarter: 2004Q1

REPORT INFORMATION
  Report Type: 
  Country: None (occurrence: None)
  Receive Date: 20040329
  Receipt Date: 20040210
  Transmission Date: 20041129
  Serious: No
  Sender: FDA-Public Use
  Company Number: 04P-163-0249796-00

PATIENT
  Age: 69 Year
  Sex: Male

DRUGS (15)
  1. HUMIRA [Suspect]
     Indication: RHEUMATOID ARTHRITIS
     Dosage: 40 MG, 1 IN 2 WK, SUBCUTANEOUS
     Route: 058
     Dates: start: 20031101
  2. METHOTREXATE [Concomitant]
  3. PREDNISONE [Concomitant]
  4. ALENDRONATE SODIUM [Concomitant]
  5. ROFECOXIB [Concomitant]
  6. OMEPRAZOLE [Concomitant]
  7. BROMFED [Concomitant]
  8. ESTIAVAN [Concomitant]
  9. CALCIUM [Concomitant]
  10. ASCORBIC ACID [Concomitant]
  11. CALCIUM CITRATE [Concomitant]
  12. PROPOXY [Concomitant]
  13. AMLODIPINE BESYLATE [Concomitant]
  14. FOLIC ACID [Concomitant]
  15. TOCOPHEROL CONCENTRATE CAP [Concomitant]

REACTIONS (2)
  - DRUG INEFFECTIVE [None]
  - RHEUMATOID ARTHRITIS [None]
